FAERS Safety Report 16751781 (Version 2)
Quarter: 2020Q1

REPORT INFORMATION
  Report Type: Spontaneous
  Country: GB (occurrence: GB)
  Receive Date: 20190828
  Receipt Date: 20200217
  Transmission Date: 20200409
  Serious: Yes (Hospitalization, Disabling, Other)
  Sender: FDA-Public Use
  Company Number: GB-TEVA-2019-GB-1097991

PATIENT
  Age: 42 Year
  Sex: Male
  Weight: 69.85 kg

DRUGS (2)
  1. DISULFIRAM. [Suspect]
     Active Substance: DISULFIRAM
     Indication: ALCOHOL WITHDRAWAL SYNDROME
     Dosage: 400 MILLIGRAM
     Route: 048
     Dates: start: 2011, end: 20190113
  2. CITALOPRAM [Concomitant]
     Active Substance: CITALOPRAM HYDROBROMIDE
     Indication: DEPRESSION
     Dosage: 40 MILLIGRAM
     Route: 048
     Dates: start: 2013

REACTIONS (6)
  - Toxicity to various agents [Unknown]
  - Asthenia [Recovering/Resolving]
  - Hypoaesthesia [Recovering/Resolving]
  - Sensory loss [Unknown]
  - Vision blurred [Recovering/Resolving]
  - Localised infection [Recovering/Resolving]

NARRATIVE: CASE EVENT DATE: 2018
